FAERS Safety Report 7079856-2 (Version None)
Quarter: 2010Q4

REPORT INFORMATION
  Report Type: 
  Country: None (occurrence: None)
  Receive Date: 20101102
  Receipt Date: 20101025
  Transmission Date: 20110411
  Serious: Yes (Hospitalization, Other)
  Sender: FDA-Public Use
  Company Number: US-ABBOTT-10P-163-0680952-00

PATIENT
  Sex: Female
  Weight: 87.622 kg

DRUGS (3)
  1. HUMIRA [Suspect]
     Indication: CROHN'S DISEASE
     Route: 058
     Dates: start: 20050101
  2. LANTUS [Concomitant]
     Indication: DIABETES MELLITUS
     Dosage: 30 UNITS AT NIGHT
     Route: 058
  3. HUMALOG [Concomitant]
     Indication: DIABETES MELLITUS
     Dosage: PER SLIDING SCALE
     Route: 058

REACTIONS (9)
  - ARTHRITIS INFECTIVE [None]
  - CROHN'S DISEASE [None]
  - EYE DISCHARGE [None]
  - HEADACHE [None]
  - JOINT SWELLING [None]
  - OPHTHALMIC FLUID DRAINAGE [None]
  - PRURITUS GENITAL [None]
  - UROSEPSIS [None]
  - VAGINAL DISCHARGE [None]
